FAERS Safety Report 5201073-9 (Version None)
Quarter: 2007Q1

REPORT INFORMATION
  Report Type: 
  Country: None (occurrence: None)
  Receive Date: 20070108
  Receipt Date: 20061211
  Transmission Date: 20070707
  Serious: No
  Sender: FDA-Public Use
  Company Number: IN-BAXTER-2006BH014963

PATIENT
  Age: 17 Day
  Sex: Male

DRUGS (8)
  1. PHENYTOIN SODIUM CAP [Suspect]
     Indication: PROPHYLAXIS
     Route: 042
  2. ATROPINE [Concomitant]
     Indication: DRUG USE FOR UNKNOWN INDICATION
     Route: 048
  3. ROCURONIUM [Concomitant]
     Indication: INTUBATION
     Dosage: DOSE UNIT:UNKNOWN
     Route: 065
  4. ISOFLURANE [Concomitant]
     Indication: MAINTENANCE OF ANAESTHESIA
     Dosage: DOSE UNIT:UNKNOWN
     Route: 065
  5. FENTANYL TRANSDERMAL SYSTEM [Concomitant]
     Indication: MAINTENANCE OF ANAESTHESIA
     Dosage: DOSE UNIT:UNKNOWN
     Route: 065
  6. DEXAMETHASONE [Concomitant]
     Indication: DRUG USE FOR UNKNOWN INDICATION
     Route: 042
  7. SODIUM CHLORIDE [Concomitant]
     Indication: MEDICATION DILUTION
     Route: 042
  8. NITROUS OXIDE W/ OXYGEN [Concomitant]
     Indication: MAINTENANCE OF ANAESTHESIA
     Dosage: DOSE UNIT:UNKNOWN
     Route: 065

REACTIONS (3)
  - BRADYCARDIA [None]
  - DRUG INEFFECTIVE [None]
  - PROCEDURAL COMPLICATION [None]
